FAERS Safety Report 12931304 (Version 1)
Quarter: 2016Q4

REPORT INFORMATION
  Report Type: Spontaneous
  Country: US (occurrence: US)
  Receive Date: 20161110
  Receipt Date: 20161110
  Transmission Date: 20170207
  Serious: No
  Sender: FDA-Public Use
  Company Number: US-JAZZ-2016-US-018206

PATIENT
  Sex: Female

DRUGS (20)
  1. BACTRIM DS [Concomitant]
     Active Substance: SULFAMETHOXAZOLE\TRIMETHOPRIM
  2. DEXTROAMPHETAMINE SACCHARATE, AMPHE ER/08698401/ [Concomitant]
  3. MAXALT-MLT [Concomitant]
     Active Substance: RIZATRIPTAN BENZOATE
  4. IMITREX [Concomitant]
     Active Substance: SUMATRIPTAN SUCCINATE
  5. CHLORHEXIDINE                      /00133002/ [Concomitant]
  6. DEXTROAMPHETAMINE                  /00016602/ [Concomitant]
  7. MULTIVITAMINS                      /00116001/ [Concomitant]
  8. XYREM [Suspect]
     Active Substance: SODIUM OXYBATE
     Indication: NARCOLEPSY
     Dosage: 3.5 G, BID
     Route: 048
     Dates: start: 201309, end: 201402
  9. ISOMETHEPTENE DICHLORAL APAP [Concomitant]
  10. XYREM [Suspect]
     Active Substance: SODIUM OXYBATE
     Dosage: 3.75 G, BID
     Route: 048
     Dates: start: 201601
  11. METHYLPREDNISOLONE                 /00049602/ [Concomitant]
     Active Substance: METHYLPREDNISOLONE
  12. IBUPROFEN                          /00109205/ [Concomitant]
     Active Substance: IBUPROFEN
  13. NUVIGIL [Concomitant]
     Active Substance: ARMODAFINIL
  14. ACETAMINOPHEN. [Concomitant]
     Active Substance: ACETAMINOPHEN
  15. XYREM [Suspect]
     Active Substance: SODIUM OXYBATE
     Indication: CATAPLEXY
     Dosage: DOSE ADJUSTMENTS
     Route: 048
     Dates: start: 201402, end: 201601
  16. SKYLA [Concomitant]
     Active Substance: LEVONORGESTREL
  17. FLUTICASONE PROPIONATE. [Concomitant]
     Active Substance: FLUTICASONE PROPIONATE
  18. SPIRONOLACTONE. [Concomitant]
     Active Substance: SPIRONOLACTONE
  19. CEPHALEXIN                         /00145504/ [Concomitant]
  20. NUVARING [Concomitant]
     Active Substance: ETHINYL ESTRADIOL\ETONOGESTREL

REACTIONS (1)
  - Renal disorder [Not Recovered/Not Resolved]
